FAERS Safety Report 5729452-1 (Version None)
Quarter: 2008Q2

REPORT INFORMATION
  Report Type: 
  Country: None (occurrence: None)
  Receive Date: 20080506
  Receipt Date: 20080423
  Transmission Date: 20081010
  Serious: Yes (Hospitalization)
  Sender: FDA-Public Use
  Company Number: US-ELI_LILLY_AND_COMPANY-US200804006302

PATIENT
  Sex: Female

DRUGS (5)
  1. HUMALOG [Suspect]
     Dates: start: 20071201
  2. CYMBALTA [Concomitant]
  3. NOVOLOG [Concomitant]
  4. LANTUS [Concomitant]
  5. HYDROCORTISONE [Concomitant]

REACTIONS (4)
  - BURNING SENSATION [None]
  - OEDEMA PERIPHERAL [None]
  - PARAESTHESIA [None]
  - SURGERY [None]
